FAERS Safety Report 21922861 (Version 2)
Quarter: 2023Q2

REPORT INFORMATION
  Report Type: Report from Study
  Country: GB (occurrence: GB)
  Receive Date: 20230128
  Receipt Date: 20230410
  Transmission Date: 20230722
  Serious: Yes (Hospitalization)
  Sender: FDA-Public Use
  Company Number: GB-002147023-NVSC2023GB015807

PATIENT
  Sex: Female

DRUGS (1)
  1. ERELZI [Suspect]
     Active Substance: ETANERCEPT-SZZS
     Indication: Rheumatoid arthritis
     Dosage: 50 MG, EW (QW)
     Route: 058

REACTIONS (4)
  - Intestinal perforation [Unknown]
  - Product dose omission issue [Unknown]
  - Viral infection [Recovering/Resolving]
  - Lower respiratory tract infection [Recovering/Resolving]

NARRATIVE: CASE EVENT DATE: 20221106
